FAERS Safety Report 8294742-8 (Version None)
Quarter: 2012Q2

REPORT INFORMATION
  Report Type: 
  Country: None (occurrence: None)
  Receive Date: 20120418
  Receipt Date: 20120411
  Transmission Date: 20120825
  Serious: Yes (Hospitalization, Disabling)
  Sender: FDA-Public Use
  Company Number: US-JNJFOC-20111003528

PATIENT
  Age: 2 Year
  Sex: Male

DRUGS (2)
  1. BENADRYL [Suspect]
     Route: 042
  2. BENADRYL [Suspect]
     Indication: HEAD INJURY
     Route: 042
     Dates: start: 19950509, end: 19950509

REACTIONS (2)
  - ACCIDENTAL OVERDOSE [None]
  - TREMOR [None]
